FAERS Safety Report 23921570 (Version 1)
Quarter: 2024Q2

REPORT INFORMATION
  Report Type: Spontaneous
  Country: GB (occurrence: GB)
  Receive Date: 20240530
  Receipt Date: 20240530
  Transmission Date: 20240716
  Serious: Yes (Other)
  Sender: FDA-Public Use
  Company Number: GB-GILEAD-2023-0652953

PATIENT
  Sex: Female

DRUGS (3)
  1. RALTEGRAVIR POTASSIUM [Suspect]
     Active Substance: RALTEGRAVIR POTASSIUM
     Indication: Product used for unknown indication
     Dosage: UNK
  2. BIKTARVY [Suspect]
     Active Substance: BICTEGRAVIR SODIUM\EMTRICITABINE\TENOFOVIR ALAFENAMIDE FUMARATE
     Indication: HIV infection
     Dosage: 275 MG, QD
  3. TRUVADA [Suspect]
     Active Substance: EMTRICITABINE\TENOFOVIR DISOPROXIL FUMARATE
     Indication: HIV infection
     Dosage: 400 MG, BID

REACTIONS (4)
  - Viraemia [Unknown]
  - Drug resistance [Unknown]
  - Off label use [Unknown]
  - Maternal exposure during pregnancy [Unknown]
